FAERS Safety Report 9324911 (Version 1)
Quarter: 2013Q2

REPORT INFORMATION
  Report Type: Spontaneous
  Country: US (occurrence: US)
  Receive Date: 20130603
  Receipt Date: 20130603
  Transmission Date: 20140414
  Serious: Yes (Disabling, Other)
  Sender: FDA-Public Use
  Company Number: US-CELGENEUS-163-20785-13054407

PATIENT
  Sex: Male

DRUGS (2)
  1. THALOMID [Suspect]
     Indication: PLASMA CELL MYELOMA
     Dosage: 200 MILLIGRAM
     Route: 048
     Dates: start: 20130110
  2. THALOMID [Suspect]
     Dosage: 100 MILLIGRAM
     Route: 048

REACTIONS (2)
  - Abasia [Unknown]
  - Blood count abnormal [Unknown]
